FAERS Safety Report 22310232 (Version 1)
Quarter: 2023Q2

REPORT INFORMATION
  Report Type: Spontaneous
  Country: US (occurrence: US)
  Receive Date: 20230511
  Receipt Date: 20230511
  Transmission Date: 20230722
  Serious: Yes (Other)
  Sender: FDA-Public Use
  Company Number: US-SA-SAC20230511000075

PATIENT
  Age: 79 Year
  Sex: Female
  Weight: 74.3 kg

DRUGS (23)
  1. DUPIXENT [Suspect]
     Active Substance: DUPILUMAB
     Indication: Asthma
     Dosage: 300 MG, QOW
     Route: 058
  2. DUPIXENT [Suspect]
     Active Substance: DUPILUMAB
     Indication: Chronic sinusitis
  3. DUPIXENT [Suspect]
     Active Substance: DUPILUMAB
     Indication: Cough variant asthma
  4. STELARA [Concomitant]
     Active Substance: USTEKINUMAB
     Dosage: UNK
  5. GABAPENTIN [Concomitant]
     Active Substance: GABAPENTIN
  6. TOPIRAMATE [Concomitant]
     Active Substance: TOPIRAMATE
  7. PRIMIDONE [Concomitant]
     Active Substance: PRIMIDONE
  8. HYDROXYCHLOROQUINE [Concomitant]
     Active Substance: HYDROXYCHLOROQUINE
  9. BOSENTAN [Concomitant]
     Active Substance: BOSENTAN
  10. BACLOFEN [Concomitant]
     Active Substance: BACLOFEN
  11. NYSTATIN [Concomitant]
     Active Substance: NYSTATIN
  12. ISOSORBIDE [Concomitant]
     Active Substance: ISOSORBIDE
  13. TRIMETHOPRIM [Concomitant]
     Active Substance: TRIMETHOPRIM
  14. RABEPRAZOLE [Concomitant]
     Active Substance: RABEPRAZOLE
  15. METOPROLOL [Concomitant]
     Active Substance: METOPROLOL
  16. PAROXETINE [Concomitant]
     Active Substance: PAROXETINE
  17. LEVOTHYROXINE [Concomitant]
     Active Substance: LEVOTHYROXINE
  18. SPIRIVA [Concomitant]
     Active Substance: TIOTROPIUM BROMIDE MONOHYDRATE
  19. SPIRONOLACTONE [Concomitant]
     Active Substance: SPIRONOLACTONE
  20. SIMVASTATIN [Concomitant]
     Active Substance: SIMVASTATIN
  21. ALBUTEROL SULFATE [Concomitant]
     Active Substance: ALBUTEROL SULFATE
  22. CEVIMELINE [Concomitant]
     Active Substance: CEVIMELINE
  23. SYMBICORT [Concomitant]
     Active Substance: BUDESONIDE\FORMOTEROL FUMARATE DIHYDRATE

REACTIONS (6)
  - Pulmonary arterial hypertension [Unknown]
  - Fatigue [Unknown]
  - Dyspnoea [Unknown]
  - Chest pain [Unknown]
  - Peripheral swelling [Unknown]
  - Product use in unapproved indication [Unknown]

NARRATIVE: CASE EVENT DATE: 20230501
